FAERS Safety Report 11739668 (Version 17)
Quarter: 2019Q2

REPORT INFORMATION
  Report Type: Report from Study
  Country: CA (occurrence: CA)
  Receive Date: 20151113
  Receipt Date: 20190626
  Transmission Date: 20190711
  Serious: Yes (Hospitalization)
  Sender: FDA-Public Use
  Company Number: PHHO2015CA018828

PATIENT
  Age: 69 Year
  Sex: Female
  Weight: 78.91 kg

DRUGS (21)
  1. FUROSEMIDE. [Concomitant]
     Active Substance: FUROSEMIDE
     Indication: CARDIAC FAILURE
     Dosage: 120 MG, UNK (80 MG AT 9 AM AND 40 MG AT 9 PM)
     Route: 048
     Dates: start: 20150520, end: 20151031
  2. METOPROLOL. [Concomitant]
     Active Substance: METOPROLOL
     Indication: CORONARY ARTERY DISEASE
     Dosage: 12.5 MG, BID
     Route: 048
     Dates: start: 20150520
  3. METOPROLOL. [Concomitant]
     Active Substance: METOPROLOL
     Dosage: 50 MG, BID
     Route: 048
  4. LASIX [Concomitant]
     Active Substance: FUROSEMIDE
     Indication: CARDIAC FAILURE
     Dosage: 80 MG, BID
     Route: 048
     Dates: start: 20170118, end: 20170630
  5. POTASSIUM [Concomitant]
     Active Substance: POTASSIUM
     Indication: SUPPLEMENTATION THERAPY
     Dosage: 20 MEQ, BID
     Route: 048
     Dates: start: 20171115
  6. VALSARTAN. [Suspect]
     Active Substance: VALSARTAN
     Indication: CARDIAC FAILURE
     Dosage: 160 MG, BID
     Route: 048
     Dates: start: 20151020, end: 20151031
  7. PANTOPRAZOLE [Concomitant]
     Active Substance: PANTOPRAZOLE
     Indication: PROPHYLAXIS AGAINST GASTROINTESTINAL ULCER
     Dosage: 40 MG, QD
     Route: 048
     Dates: start: 20141111, end: 20151031
  8. METOPROLOL. [Concomitant]
     Active Substance: METOPROLOL
     Dosage: 37.5 MG, BID
     Route: 048
     Dates: start: 20151107, end: 20180505
  9. AMLODIPINE [Concomitant]
     Active Substance: AMLODIPINE BESYLATE
     Indication: HYPERTENSION
     Dosage: 10 MG, QD
     Route: 048
     Dates: start: 20130627
  10. LASIX [Concomitant]
     Active Substance: FUROSEMIDE
     Dosage: 120 MG, BID
     Route: 048
     Dates: start: 20150520, end: 20180412
  11. LASIX [Concomitant]
     Active Substance: FUROSEMIDE
     Dosage: 80 MG AM + 60 MG PM
     Route: 048
     Dates: start: 20190403, end: 20190422
  12. AMLODIPINE [Concomitant]
     Active Substance: AMLODIPINE BESYLATE
     Dosage: 10 MG, QD
     Route: 048
     Dates: start: 20180414
  13. LASIX [Concomitant]
     Active Substance: FUROSEMIDE
     Dosage: 80 MG AM + 60 MG PM
     Route: 048
     Dates: start: 20190422
  14. VITAMIN D3 [Concomitant]
     Active Substance: CHOLECALCIFEROL
     Indication: PRODUCT USED FOR UNKNOWN INDICATION
     Route: 065
  15. ASA [Concomitant]
     Active Substance: ASPIRIN
     Indication: CORONARY ARTERY DISEASE
     Dosage: 80 MG, QD
     Route: 048
     Dates: start: 2013
  16. PANTOLOC//PANTOPRAZOLE SODIUM SESQUIHYDRATE [Concomitant]
     Active Substance: PANTOPRAZOLE SODIUM
     Indication: ANAEMIA
     Dosage: 40 MG, BID
     Route: 048
     Dates: start: 20161230
  17. PRAVASTATIN. [Concomitant]
     Active Substance: PRAVASTATIN
     Indication: DYSLIPIDAEMIA
     Dosage: 40 MG, QD
     Route: 048
     Dates: start: 20140930
  18. PANTOLOC//PANTOPRAZOLE SODIUM SESQUIHYDRATE [Concomitant]
     Active Substance: PANTOPRAZOLE SODIUM
     Indication: PROPHYLAXIS AGAINST GASTROINTESTINAL ULCER
     Dosage: 40 MG, BID
     Route: 048
     Dates: start: 20141111
  19. LASIX [Concomitant]
     Active Substance: FUROSEMIDE
     Dosage: UNK
     Route: 048
     Dates: start: 20190423
  20. LASIX [Concomitant]
     Active Substance: FUROSEMIDE
     Dosage: 80 MG, BID
     Route: 048
     Dates: start: 20170708, end: 20171106
  21. FERROUS SULFATE. [Concomitant]
     Active Substance: FERROUS SULFATE
     Indication: ANAEMIA
     Dosage: 300 MG, BID
     Route: 048
     Dates: start: 20141111

REACTIONS (17)
  - Cardiac failure congestive [Recovered/Resolved]
  - Cardiac failure congestive [Recovered/Resolved]
  - Iron deficiency anaemia [Recovered/Resolved]
  - Anaemia [Recovered/Resolved]
  - Anaemia [Recovered/Resolved]
  - Cardiac failure congestive [Recovered/Resolved]
  - Urinary tract infection [Recovered/Resolved]
  - Cardiac failure congestive [Recovered/Resolved]
  - Hypertension [Recovered/Resolved]
  - Acute kidney injury [Recovered/Resolved]
  - Cardiac failure congestive [Recovered/Resolved]
  - Leukocytosis [Recovered/Resolved]
  - Acute kidney injury [Recovered/Resolved]
  - Cardiac failure congestive [Recovered/Resolved]
  - Cardiac failure congestive [Recovered/Resolved]
  - Gastrointestinal haemorrhage [Recovered/Resolved]
  - Anaemia [Recovered/Resolved]

NARRATIVE: CASE EVENT DATE: 20151101
